FAERS Safety Report 9443327 (Version 1)
Quarter: 2013Q3

REPORT INFORMATION
  Report Type: Spontaneous
  Country: US (occurrence: US)
  Receive Date: 20130806
  Receipt Date: 20130806
  Transmission Date: 20140515
  Serious: Yes (Other)
  Sender: FDA-Public Use
  Company Number: US-BAXTER-2013BAX023193

PATIENT
  Sex: Male

DRUGS (2)
  1. GAMMAGARD LIQUID [Suspect]
     Indication: IMMUNODEFICIENCY COMMON VARIABLE
     Dosage: 1 GRAM/10ML VIALS
     Route: 058
  2. GAMMAGARD LIQUID [Suspect]
     Dosage: 5 GRAM/50ML VIALS
     Route: 058

REACTIONS (1)
  - Hepatitis B virus test positive [Unknown]
